FAERS Safety Report 21346381 (Version 4)
Quarter: 2022Q4

REPORT INFORMATION
  Report Type: Report from Study
  Country: US (occurrence: US)
  Receive Date: 20220917
  Receipt Date: 20221213
  Transmission Date: 20230113
  Serious: Yes (Hospitalization, Other)
  Sender: FDA-Public Use
  Company Number: US-NOVARTISPH-NVSC2022US208348

PATIENT
  Sex: Male

DRUGS (1)
  1. ENTRESTO [Suspect]
     Active Substance: SACUBITRIL\VALSARTAN
     Indication: Product used for unknown indication
     Dosage: 1 DOSAGE FORM, BID (24 MG, 50 MG (24/26 MG: SACUBITRIL 24.3 MG, VALSARTAN 25.7 MG)
     Route: 065

REACTIONS (9)
  - Dyspnoea [Unknown]
  - Arrhythmia [Unknown]
  - Pancreatitis [Unknown]
  - Atrial fibrillation [Unknown]
  - Weight decreased [Unknown]
  - Hernia [Unknown]
  - Weight fluctuation [Unknown]
  - International normalised ratio abnormal [Unknown]
  - Fatigue [Unknown]
